FAERS Safety Report 19019774 (Version 5)
Quarter: 2021Q3

REPORT INFORMATION
  Report Type: Report from Study
  Country: US (occurrence: US)
  Receive Date: 20210316
  Receipt Date: 20210715
  Transmission Date: 20211014
  Serious: Yes (Hospitalization)
  Sender: FDA-Public Use
  Company Number: US-BEIGENE AUS PTY LTD-BGN-2021-000697

PATIENT

DRUGS (12)
  1. COLACE CLEAR [Concomitant]
     Active Substance: DOCUSATE SODIUM
  2. METFORMIN [Concomitant]
     Active Substance: METFORMIN HYDROCHLORIDE
  3. DILTIAZEM HCL [Concomitant]
     Active Substance: DILTIAZEM HYDROCHLORIDE
  4. VITAMIN D3 [Concomitant]
     Active Substance: CHOLECALCIFEROL
  5. DEXTRAN 70 W/GLYCEROL/HYPROMELLOSE [Concomitant]
  6. MULTI?VIT [Concomitant]
     Active Substance: VITAMINS
  7. METOPROLOL TARTRATE. [Concomitant]
     Active Substance: METOPROLOL TARTRATE
  8. BRUKINSA [Suspect]
     Active Substance: ZANUBRUTINIB
     Indication: B-CELL LYMPHOMA
  9. ACYCLOVIR. [Concomitant]
     Active Substance: ACYCLOVIR
  10. BRUKINSA [Suspect]
     Active Substance: ZANUBRUTINIB
     Indication: WALDENSTROM^S MACROGLOBULINAEMIA
     Dosage: 160 MILLIGRAM, BID
     Route: 048
     Dates: start: 20210304, end: 20210321
  11. TYLENOL [Concomitant]
     Active Substance: ACETAMINOPHEN
  12. PROMACTA [Concomitant]
     Active Substance: ELTROMBOPAG OLAMINE

REACTIONS (11)
  - Subdural haematoma [Recovered/Resolved]
  - Skin laceration [Recovered/Resolved]
  - Neutropenia [Unknown]
  - Syncope [Recovered/Resolved]
  - Headache [Recovered/Resolved]
  - Tinnitus [Recovered/Resolved]
  - Heart rate increased [Recovered/Resolved]
  - Intentional dose omission [Recovered/Resolved]
  - Off label use [Unknown]
  - Fall [Recovered/Resolved]
  - Skin haemorrhage [Unknown]

NARRATIVE: CASE EVENT DATE: 20210304
